FAERS Safety Report 5669611-X (Version None)
Quarter: 2008Q1

REPORT INFORMATION
  Report Type: 
  Country: None (occurrence: None)
  Receive Date: 20080317
  Receipt Date: 20080306
  Transmission Date: 20080703
  Serious: Yes (Hospitalization)
  Sender: FDA-Public Use
  Company Number: PHRM2008FR00998

PATIENT
  Age: 57 Year
  Sex: Male

DRUGS (3)
  1. EXJADE [Suspect]
     Indication: TRANSFUSION
     Dosage: 1000 MG, QD
     Route: 048
     Dates: start: 20070426, end: 20070503
  2. EXJADE [Suspect]
     Dosage: 1250 MG, QD
     Route: 048
     Dates: start: 20070504, end: 20070622
  3. GRANOCYTE ^CHUGAI^ [Concomitant]
     Indication: MYELODYSPLASTIC SYNDROME
     Dosage: 39000000 IU/WEEK
     Route: 048

REACTIONS (3)
  - ABDOMINAL PAIN [None]
  - CALCULUS URINARY [None]
  - RENAL FAILURE ACUTE [None]
